FAERS Safety Report 5287420-0 (Version None)
Quarter: 2007Q1

REPORT INFORMATION
  Report Type: 
  Country: None (occurrence: None)
  Receive Date: 20070116
  Receipt Date: 20060926
  Transmission Date: 20070707
  Serious: No
  Sender: FDA-Public Use
  Company Number: 2006SP003441

PATIENT
  Age: 60 Year
  Sex: Female
  Weight: 99.7913 kg

DRUGS (9)
  1. LUNESTA [Suspect]
     Indication: SLEEP DISORDER
     Dosage: HS; ORAL
     Route: 048
     Dates: start: 20060601, end: 20060701
  2. SYNTHROID [Concomitant]
  3. ATORVASTATIN CALCIUM [Concomitant]
  4. TRICOR [Concomitant]
  5. LISINOPRIL [Concomitant]
  6. AVANDIA [Concomitant]
  7. PANTOPRAZOLE [Concomitant]
  8. GLUCOTROL [Concomitant]
  9. ALPRAZOLAM [Concomitant]

REACTIONS (2)
  - DRUG INEFFECTIVE [None]
  - INITIAL INSOMNIA [None]
